FAERS Safety Report 7772951-1 (Version None)
Quarter: 2011Q3

REPORT INFORMATION
  Report Type: 
  Country: None (occurrence: None)
  Receive Date: 20110922
  Receipt Date: 20110203
  Transmission Date: 20111222
  Serious: Yes (Hospitalization)
  Sender: FDA-Public Use
  Company Number: US-ASTRAZENECA-2011SE06071

PATIENT
  Age: 53 Year
  Sex: Male
  Weight: 98.9 kg

DRUGS (5)
  1. SEROQUEL [Suspect]
     Route: 048
     Dates: start: 20100101, end: 20101201
  2. SEROQUEL [Suspect]
     Route: 048
     Dates: start: 20100101, end: 20101201
  3. HYDROCODONE [Concomitant]
     Indication: PAIN
  4. SINGULAIR [Concomitant]
     Indication: FEELING COLD
  5. SEROQUEL [Suspect]
     Indication: SLEEP DISORDER
     Route: 048
     Dates: start: 20080101, end: 20100101

REACTIONS (2)
  - APPARENT DEATH [None]
  - DIABETES MELLITUS [None]
